FAERS Safety Report 5799792-9 (Version None)
Quarter: 2008Q3

REPORT INFORMATION
  Report Type: 
  Country: None (occurrence: None)
  Receive Date: 20080701
  Receipt Date: 20080618
  Transmission Date: 20090109
  Serious: Yes (Death, Hospitalization)
  Sender: FDA-Public Use
  Company Number: 2008BI000458

PATIENT
  Age: 36 Year
  Sex: Female

DRUGS (1)
  1. AVONEX [Suspect]
     Indication: MULTIPLE SCLEROSIS
     Dosage: 30 UG; QW; IM
     Route: 030

REACTIONS (3)
  - DYSPNOEA [None]
  - PERICARDIAL EFFUSION [None]
  - T-CELL LYMPHOMA STAGE IV [None]
